FAERS Safety Report 17562737 (Version 4)
Quarter: 2020Q2

REPORT INFORMATION
  Report Type: Report from Study
  Country: US (occurrence: US)
  Receive Date: 20200319
  Receipt Date: 20200601
  Transmission Date: 20200713
  Serious: Yes (Hospitalization, Other)
  Sender: FDA-Public Use
  Company Number: US-ACTELION-A-NJ2019-195088

PATIENT
  Sex: Female
  Weight: 78.91 kg

DRUGS (5)
  1. OPSUMIT [Suspect]
     Active Substance: MACITENTAN
     Indication: PULMONARY ARTERIAL HYPERTENSION
     Dosage: 10 MG, QD
     Route: 048
     Dates: end: 202005
  2. NIFEDIPINE. [Concomitant]
     Active Substance: NIFEDIPINE
  3. OXYGEN. [Concomitant]
     Active Substance: OXYGEN
  4. ADEMPAS [Suspect]
     Active Substance: RIOCIGUAT
     Dosage: 2 MG
     Route: 065
     Dates: start: 20191205
  5. ADEMPAS [Suspect]
     Active Substance: RIOCIGUAT
     Indication: PRODUCT USED FOR UNKNOWN INDICATION
     Route: 065

REACTIONS (19)
  - Confusional state [Unknown]
  - Hallucination [Unknown]
  - Influenza [Unknown]
  - Dyspnoea exertional [Unknown]
  - Pneumonia [Unknown]
  - Headache [Not Recovered/Not Resolved]
  - Somnolence [Unknown]
  - Oedema peripheral [Recovering/Resolving]
  - Nausea [Not Recovered/Not Resolved]
  - Frontal sinus operation [Unknown]
  - Fluid retention [Unknown]
  - Weight increased [Unknown]
  - Condition aggravated [Unknown]
  - Sinus operation [Unknown]
  - Dyspnoea [Unknown]
  - Oxygen consumption increased [Unknown]
  - Skin discolouration [Unknown]
  - Hallucination, visual [Unknown]
  - Cough [Unknown]
